FAERS Safety Report 12737421 (Version 2)
Quarter: 2016Q3

REPORT INFORMATION
  Report Type: Report from Study
  Country: CO (occurrence: CO)
  Receive Date: 20160912
  Receipt Date: 20160929
  Transmission Date: 20161109
  Serious: Yes (Other)
  Sender: FDA-Public Use
  Company Number: CO-SA-2016SA165415

PATIENT
  Age: 27 Year
  Sex: Male
  Weight: 64 kg

DRUGS (2)
  1. LEMTRADA [Suspect]
     Active Substance: ALEMTUZUMAB
     Indication: MULTIPLE SCLEROSIS
     Route: 042
     Dates: start: 20160409, end: 20160413
  2. ATORVASTATIN [Concomitant]
     Active Substance: ATORVASTATIN
     Indication: DYSLIPIDAEMIA
     Route: 048
     Dates: start: 201603

REACTIONS (3)
  - Leukopenia [Not Recovered/Not Resolved]
  - Lymphopenia [Not Recovered/Not Resolved]
  - Neutrophilia [Not Recovered/Not Resolved]

NARRATIVE: CASE EVENT DATE: 20160510
